FAERS Safety Report 13561221 (Version 1)
Quarter: 2017Q2

REPORT INFORMATION
  Report Type: Spontaneous
  Country: FR (occurrence: FR)
  Receive Date: 20170518
  Receipt Date: 20170518
  Transmission Date: 20170830
  Serious: Yes (Hospitalization)
  Sender: FDA-Public Use
  Company Number: FR-AMGEN-FRASP2017071973

PATIENT
  Sex: Male

DRUGS (10)
  1. XGEVA [Suspect]
     Active Substance: DENOSUMAB
     Indication: PROPHYLAXIS
     Dosage: 120 MG, UNK
     Route: 058
     Dates: start: 20170421, end: 20170421
  2. ACTISKENAN [Concomitant]
     Active Substance: MORPHINE SULFATE
     Indication: LUNG ADENOCARCINOMA
     Dosage: UNK
     Dates: start: 201702
  3. MESTINON [Concomitant]
     Active Substance: PYRIDOSTIGMINE BROMIDE
     Indication: LUNG ADENOCARCINOMA
     Dosage: UNK
     Dates: start: 201702
  4. DUPHALAC [Concomitant]
     Active Substance: LACTULOSE
     Indication: LUNG ADENOCARCINOMA
     Dosage: UNK
     Dates: start: 201702
  5. LYRICA [Suspect]
     Active Substance: PREGABALIN
     Indication: PAIN
     Dosage: 50 MG, QD
     Route: 048
     Dates: start: 20170421, end: 20170422
  6. LAROXYL [Concomitant]
     Active Substance: AMITRIPTYLINE
     Indication: LUNG ADENOCARCINOMA
     Dosage: UNK
     Dates: start: 201702
  7. SPECIAFOLDINE [Concomitant]
     Active Substance: FOLIC ACID
     Indication: LUNG ADENOCARCINOMA
     Dosage: UNK
     Dates: start: 201702
  8. OPDIVO [Suspect]
     Active Substance: NIVOLUMAB
     Indication: LUNG ADENOCARCINOMA
     Dosage: 216 MG, UNK
     Route: 042
     Dates: start: 20170421, end: 20170421
  9. DUROGESIC [Concomitant]
     Active Substance: FENTANYL
     Indication: LUNG ADENOCARCINOMA
     Dosage: UNK
     Dates: start: 201702
  10. EUPANTOL [Concomitant]
     Active Substance: PANTOPRAZOLE SODIUM
     Indication: LUNG ADENOCARCINOMA
     Dosage: UNK
     Dates: start: 201702

REACTIONS (3)
  - Rash morbilliform [Recovered/Resolved]
  - Rash scarlatiniform [Recovered/Resolved]
  - Pyrexia [Recovered/Resolved]

NARRATIVE: CASE EVENT DATE: 20170422
